FAERS Safety Report 6541762-7 (Version None)
Quarter: 2010Q1

REPORT INFORMATION
  Report Type: 
  Country: None (occurrence: None)
  Receive Date: 20100119
  Receipt Date: 20100113
  Transmission Date: 20100710
  Serious: Yes (Other)
  Sender: FDA-Public Use
  Company Number: GB-BAYER-201011489GPV

PATIENT
  Age: 30 Year
  Sex: Female

DRUGS (18)
  1. MOXIFLOXACIN HCL [Suspect]
     Indication: TUBERCULOSIS
     Dosage: TOTAL DAILY DOSE: 400 MG
     Route: 048
     Dates: start: 20080207
  2. CEPHRADINE [Concomitant]
     Indication: URINARY TRACT INFECTION
     Dates: start: 20071206
  3. CHLORPHENIRAMINE [Concomitant]
     Indication: RASH
     Dosage: TOTAL DAILY DOSE: 12 MG
     Route: 048
     Dates: start: 20080217
  4. ETHAMBUTOL HYDROCHLORIDE [Concomitant]
     Indication: RASH
     Dates: start: 20080117, end: 20080121
  5. ETHAMBUTOL HYDROCHLORIDE [Concomitant]
     Dates: start: 20071101, end: 20071129
  6. GAVISCON [Concomitant]
     Indication: DRUG USE FOR UNKNOWN INDICATION
     Dates: start: 20080105
  7. ISONIAZID [Concomitant]
     Indication: PRURITUS
     Dates: start: 20080217, end: 20080217
  8. ISONIAZID [Concomitant]
     Dates: start: 20071220, end: 20080121
  9. ISONIAZID [Concomitant]
     Dates: start: 20071101, end: 20071129
  10. PYRAZINAMIDE [Concomitant]
     Indication: HEPATIC ENZYME ABNORMAL
     Dates: start: 20071227, end: 20080112
  11. PYRAZINAMIDE [Concomitant]
     Dates: start: 20071101, end: 20071129
  12. PYRIDOXINE [Concomitant]
     Indication: DRUG USE FOR UNKNOWN INDICATION
  13. RIFAMPICIN [Concomitant]
     Indication: PRURITUS
     Dates: start: 20080204, end: 20080217
  14. RIFAMPICIN [Concomitant]
     Dates: start: 20071101, end: 20071129
  15. RIFAMPICIN [Concomitant]
     Dates: start: 20071213, end: 20080121
  16. RIFATER [Concomitant]
     Indication: DRUG USE FOR UNKNOWN INDICATION
     Dates: start: 20080217
  17. RIFINAH [Concomitant]
     Indication: TUBERCULOSIS
     Route: 048
     Dates: start: 20080207
  18. IRON SUPPLEMENT [Concomitant]
     Indication: PREGNANCY

REACTIONS (1)
  - STILLBIRTH [None]
